FAERS Safety Report 8252102-X (Version None)
Quarter: 2012Q2

REPORT INFORMATION
  Report Type: 
  Country: None (occurrence: None)
  Receive Date: 20120402
  Receipt Date: 20110309
  Transmission Date: 20120825
  Serious: No
  Sender: FDA-Public Use
  Company Number: US-ABBOTT-11P-163-0804282-00

PATIENT
  Sex: Male
  Weight: 80.909 kg

DRUGS (1)
  1. TESTOSTERONE [Suspect]
     Indication: BLOOD TESTOSTERONE DECREASED
     Dosage: DAILY DOSE:  UNKNOWN, DURATION : 2 WEEKS, 4 PUMPS.
     Route: 062

REACTIONS (1)
  - PRURITUS [None]
